FAERS Safety Report 10252424 (Version 1)
Quarter: 2014Q2

REPORT INFORMATION
  Report Type: Spontaneous
  Country: US (occurrence: None)
  Receive Date: 20140620
  Receipt Date: 20140620
  Transmission Date: 20141212
  Serious: Yes (Life-Threatening, Hospitalization)
  Sender: FDA-Public Use
  Company Number: None

PATIENT
  Age: 49 Year
  Sex: Female
  Weight: 52.62 kg

DRUGS (4)
  1. KEPPRA (LEVETIRACETAM) [Suspect]
     Indication: CONVULSION
     Dosage: PO 2X/DAILY
     Route: 048
     Dates: start: 20140326, end: 20140531
  2. RISPERIDONE [Concomitant]
  3. INDEROL [Concomitant]
  4. LITHIUM [Concomitant]

REACTIONS (2)
  - Stevens-Johnson syndrome [None]
  - Blister [None]
